FAERS Safety Report 8669605 (Version 2)
Quarter: 2013Q3

REPORT INFORMATION
  Report Type: Spontaneous
  Country: GB (occurrence: None)
  Receive Date: 20120702
  Receipt Date: 20130813
  Transmission Date: 20140515
  Serious: Yes (Hospitalization)
  Sender: FDA-Public Use
  Company Number: AG-2012-0465

PATIENT
  Age: 54 Year
  Sex: Female
  Weight: 99.8 kg

DRUGS (9)
  1. CHLORAMBUCIL [Suspect]
     Indication: CHRONIC LYMPHOCYTIC LEUKAEMIA
     Dosage: 20 MG ER DAY (20 MILLIGRAM,1) ORAL
     Route: 048
     Dates: start: 20120106
  2. OFATUMUMAB [Suspect]
     Indication: CHRONIC LYMPHOCYTIC LEUKAEMIA
     Dosage: 1000MG MONTHLY (1000 MILLIGRAM,1) INTRAVENOUS (NOT OTHERWISE SPECIFIED)
     Route: 042
     Dates: start: 20120105
  3. PREDNISOLONE [Suspect]
     Indication: PRODUCT USED FOR UNKNOWN INDICATION
     Dosage: 20MG PER DAY (20 MILLIGRAM,1) ORAL
     Route: 048
     Dates: start: 20120104
  4. PARACETAMOL [Concomitant]
  5. CHLORPHENIRAMINE [Concomitant]
  6. ALLOPURINOL [Concomitant]
  7. METOCLOPRAMIDE [Concomitant]
  8. ACYCLOVIR SODIUM [Concomitant]
  9. G-CSF (GRANULOCYTE COLONY STIMULATING FACTOR) [Concomitant]

REACTIONS (6)
  - Pyrexia [None]
  - Malaise [None]
  - Cholecystitis acute [None]
  - Staphylococcus test positive [None]
  - Cholelithiasis [None]
  - Infection [None]
